FAERS Safety Report 5026167-2 (Version None)
Quarter: 2006Q2

REPORT INFORMATION
  Report Type: 
  Country: None (occurrence: None)
  Receive Date: 20060608
  Receipt Date: 20060531
  Transmission Date: 20061013
  Serious: Yes (Hospitalization)
  Sender: FDA-Public Use
  Company Number: 2006071188

PATIENT
  Age: 20 Year
  Sex: Male

DRUGS (1)
  1. LISTERINE (MENTHOL, METHYL SALICYLATE, EUCALYPTOL, THYMOL) [Suspect]
     Dosage: 150 ML ON 13MAY2006, ORAL
     Route: 048
     Dates: start: 20060513

REACTIONS (5)
  - ASTHENIA [None]
  - ERYTHEMA [None]
  - FACE OEDEMA [None]
  - INFECTION [None]
  - LIVER DISORDER [None]
